FAERS Safety Report 8827699 (Version 2)
Quarter: 2012Q4

REPORT INFORMATION
  Report Type: 
  Country: US (occurrence: US)
  Receive Date: 20121005
  Receipt Date: 20121026
  Transmission Date: 20130627
  Serious: Yes (Death)
  Sender: FDA-Public Use
  Company Number: PHEH2012US019382

PATIENT
  Sex: Male
  Weight: 64 kg

DRUGS (6)
  1. GLEEVEC [Suspect]
     Indication: CHRONIC MYELOID LEUKAEMIA
     Dosage: 200 mg, daily
     Route: 048
  2. LASIX [Concomitant]
     Indication: OEDEMA
     Dosage: 20 mg, UNK
     Route: 048
  3. OMEPRAZOLE [Concomitant]
     Dosage: 20 mg, UNK
     Route: 048
  4. TOPROL XL [Concomitant]
     Dosage: 100 mg, UNK
     Route: 048
  5. ASA [Concomitant]
     Dosage: 81 mg, UNK
     Route: 048
  6. FOSAMAX [Concomitant]
     Dosage: 70 mg, UNK
     Route: 048

REACTIONS (3)
  - Renal failure [Fatal]
  - Myocardial infarction [Fatal]
  - Agitation [Unknown]
